FAERS Safety Report 6377394-3 (Version None)
Quarter: 2009Q3

REPORT INFORMATION
  Report Type: 
  Country: None (occurrence: None)
  Receive Date: 20090923
  Receipt Date: 20090923
  Transmission Date: 20100115
  Serious: Yes (Life-Threatening, Hospitalization)
  Sender: FDA-Public Use
  Company Number: None

PATIENT
  Age: 51 Year
  Sex: Female
  Weight: 53.1 kg

DRUGS (8)
  1. ENOXAPARIN SODIUM [Suspect]
     Indication: PROPHYLAXIS
     Dosage: 60 MG SQ BID
     Route: 058
  2. APAP TAB [Concomitant]
  3. BISACODYL [Concomitant]
  4. DIPHENHYDRAMINE HCL [Concomitant]
  5. HYDROMORPHONE [Concomitant]
  6. ONDANSETRON [Concomitant]
  7. PROMETHAZINE [Concomitant]
  8. RANITIDINE [Concomitant]

REACTIONS (8)
  - ABDOMINAL PAIN [None]
  - ASTHENIA [None]
  - BLOOD CREATININE INCREASED [None]
  - CONSTIPATION [None]
  - HAEMOGLOBIN DECREASED [None]
  - HAEMORRHAGE [None]
  - NAUSEA [None]
  - VOMITING [None]
